FAERS Safety Report 8885131 (Version 3)
Quarter: 2013Q4

REPORT INFORMATION
  Report Type: Spontaneous
  Country: US (occurrence: US)
  Receive Date: 20121102
  Receipt Date: 20131223
  Transmission Date: 20140711
  Serious: Yes (Hospitalization)
  Sender: FDA-Public Use
  Company Number: US-PFIZER INC-2012272109

PATIENT
  Age: 67 Year
  Sex: Female
  Weight: 77.1 kg

DRUGS (2)
  1. LYRICA [Suspect]
     Indication: NEUROPATHY PERIPHERAL
     Dosage: 150 MG, 2X/DAY
  2. EFFEXOR XR [Suspect]
     Dosage: UNK

REACTIONS (2)
  - Lower limb fracture [Unknown]
  - Anxiety [Unknown]
